FAERS Safety Report 7976228-0 (Version None)
Quarter: 2011Q4

REPORT INFORMATION
  Report Type: 
  Country: None (occurrence: None)
  Receive Date: 20111213
  Receipt Date: 20111014
  Transmission Date: 20120403
  Serious: No
  Sender: FDA-Public Use
  Company Number: US-AMGEN-USASP2011051001

PATIENT
  Age: 60 Year
  Sex: Female

DRUGS (7)
  1. INDAPAMIDE [Concomitant]
  2. POTASSIUM CHLORIDE [Concomitant]
  3. SIMVASTATIN [Concomitant]
  4. HYDROCODONE [Concomitant]
  5. ENBREL [Suspect]
     Indication: RHEUMATOID ARTHRITIS
     Dosage: 25 MG, 2 TIMES/WK
     Dates: start: 20100101
  6. PIROXICAM [Concomitant]
  7. MEFORMIN [Concomitant]

REACTIONS (3)
  - FIBROMYALGIA [None]
  - BACK PAIN [None]
  - MYALGIA [None]
